FAERS Safety Report 8393956-6 (Version None)
Quarter: 2012Q2

REPORT INFORMATION
  Report Type: 
  Country: None (occurrence: None)
  Receive Date: 20120516
  Receipt Date: 20120430
  Transmission Date: 20120825
  Serious: Yes (Other)
  Sender: FDA-Public Use
  Company Number: 2012SP025275

PATIENT

DRUGS (1)
  1. TEMOZOLOMIDE [Suspect]
     Indication: PRODUCT USED FOR UNKNOWN INDICATION

REACTIONS (13)
  - HEPATITIS CHOLESTATIC [None]
  - LIVER INJURY [None]
  - HEPATITIS FULMINANT [None]
  - CHOLESTASIS [None]
  - HEPATIC NECROSIS [None]
  - LIVER DISORDER [None]
  - HEPATIC ENCEPHALOPATHY [None]
  - HEPATITIS [None]
  - HEPATIC STEATOSIS [None]
  - HEPATITIS ACUTE [None]
  - ACUTE HEPATIC FAILURE [None]
  - HEPATOTOXICITY [None]
  - CHOLELITHIASIS [None]
